FAERS Safety Report 6448787-0 (Version None)
Quarter: 2009Q4

REPORT INFORMATION
  Report Type: 
  Country: None (occurrence: None)
  Receive Date: 20091120
  Receipt Date: 20091109
  Transmission Date: 20100525
  Serious: Yes (Hospitalization, Other)
  Sender: FDA-Public Use
  Company Number: PHHY2009DE49590

PATIENT
  Sex: Female
  Weight: 85 kg

DRUGS (4)
  1. ALISKIREN ALI+ [Suspect]
     Indication: HYPERTENSION
     Dosage: UNK
     Dates: start: 20081021
  2. BETA BLOCKING AGENTS [Concomitant]
  3. STATIN [Concomitant]
  4. ANTICOAGULANTS [Concomitant]
     Route: 048

REACTIONS (1)
  - CORONARY ARTERY BYPASS [None]
